FAERS Safety Report 9171852 (Version 1)
Quarter: 2013Q1

REPORT INFORMATION
  Report Type: Spontaneous
  Country: US (occurrence: US)
  Receive Date: 20130319
  Receipt Date: 20130319
  Transmission Date: 20140127
  Serious: No
  Sender: FDA-Public Use
  Company Number: US-009507513-1303USA008500

PATIENT
  Sex: Male

DRUGS (2)
  1. JANUMET [Suspect]
  2. GLIPIZIDE [Concomitant]

REACTIONS (1)
  - Blood glucose abnormal [Unknown]
